FAERS Safety Report 8809659 (Version 1)
Quarter: 2012Q4

REPORT INFORMATION
  Report Type: 
  Country: US (occurrence: US)
  Receive Date: 20120926
  Receipt Date: 20120926
  Transmission Date: 20130627
  Serious: Yes (Other)
  Sender: FDA-Public Use
  Company Number: US-ROCHE-1124673

PATIENT
  Sex: Female

DRUGS (8)
  1. AVASTIN [Suspect]
     Indication: BREAST CANCER FEMALE
     Route: 065
  2. HERCEPTIN [Suspect]
     Indication: PRODUCT USED FOR UNKNOWN INDICATION
     Route: 065
  3. HERCEPTIN [Suspect]
     Route: 065
     Dates: start: 200503, end: 200509
  4. XELODA [Suspect]
     Indication: PRODUCT USED FOR UNKNOWN INDICATION
     Route: 065
  5. ARIMIDEX [Concomitant]
     Route: 065
     Dates: start: 200411
  6. NAVELBINE [Concomitant]
     Route: 065
     Dates: start: 200503, end: 200509
  7. ZOMETA [Concomitant]
     Route: 065
     Dates: start: 200503, end: 200509
  8. ABRAXANE [Concomitant]
     Route: 065
     Dates: start: 200607, end: 200609

REACTIONS (2)
  - Femur fracture [Unknown]
  - Disease progression [Unknown]
